FAERS Safety Report 24001240 (Version 1)
Quarter: 2024Q2

REPORT INFORMATION
  Report Type: Spontaneous
  Country: MX (occurrence: MX)
  Receive Date: 20240621
  Receipt Date: 20240621
  Transmission Date: 20240716
  Serious: Yes (Other)
  Sender: FDA-Public Use
  Company Number: MX-PFIZER INC-PV202400080492

PATIENT
  Age: 4 Month
  Sex: Male
  Weight: 4.3 kg

DRUGS (5)
  1. ALPROSTADIL [Suspect]
     Active Substance: ALPROSTADIL
     Indication: Heart disease congenital
     Dosage: SINGLE-DOSE BOLUS AT 8 MCG/KG BY PERIPHERAL VEIN IN LESS THAN 5 SECONDS
     Route: 040
  2. SODIUM CHLORIDE [Concomitant]
     Active Substance: SODIUM CHLORIDE
     Indication: Metabolic acidosis
     Dosage: UNK
     Route: 040
  3. SODIUM CHLORIDE [Concomitant]
     Active Substance: SODIUM CHLORIDE
     Dosage: 10 ML BOLUS (RESEMBLING ADENOSINE ADMINISTRATION)
     Route: 040
  4. SODIUM BICARBONATE [Concomitant]
     Active Substance: SODIUM BICARBONATE
     Indication: Metabolic acidosis
     Dosage: UNK
     Route: 040
  5. EPINEPHRINE [Concomitant]
     Active Substance: EPINEPHRINE
     Indication: Metabolic acidosis
     Dosage: UNK
     Route: 040

REACTIONS (4)
  - Hypotension [Recovered/Resolved]
  - Off label use [Unknown]
  - Drug effective for unapproved indication [Unknown]
  - Product use issue [Unknown]
